FAERS Safety Report 12579049 (Version 1)
Quarter: 2016Q3

REPORT INFORMATION
  Report Type: Report from Study
  Country: GR (occurrence: GR)
  Receive Date: 20160721
  Receipt Date: 20160721
  Transmission Date: 20161109
  Serious: Yes (Other)
  Sender: FDA-Public Use
  Company Number: PHHY2016GR078619

PATIENT
  Sex: Female

DRUGS (1)
  1. AFINITOR [Suspect]
     Active Substance: EVEROLIMUS
     Indication: PRODUCT USED FOR UNKNOWN INDICATION
     Dosage: 10 MG
     Route: 065
     Dates: end: 20160605

REACTIONS (8)
  - Osteonecrosis [Unknown]
  - Oral pain [Unknown]
  - Erythema [Unknown]
  - Oedema [Unknown]
  - Osteitis [Unknown]
  - Abscess oral [Unknown]
  - Mouth swelling [Unknown]
  - Infected fistula [Unknown]

NARRATIVE: CASE EVENT DATE: 20160603
